FAERS Safety Report 5990011-7 (Version None)
Quarter: 2008Q4

REPORT INFORMATION
  Report Type: 
  Country: None (occurrence: None)
  Receive Date: 20081209
  Receipt Date: 20081209
  Transmission Date: 20090506
  Serious: Yes (Other)
  Sender: FDA-Public Use
  Company Number: None

PATIENT
  Age: 77 Year
  Sex: Male
  Weight: 81.6475 kg

DRUGS (1)
  1. SORIATANE [Suspect]
     Indication: POROKERATOSIS
     Dosage: 25 MG DAILY PO
     Route: 048
     Dates: start: 20080501, end: 20081205

REACTIONS (2)
  - DEAFNESS UNILATERAL [None]
  - TINNITUS [None]
